FAERS Safety Report 10458662 (Version 1)
Quarter: 2014Q3

REPORT INFORMATION
  Report Type: Spontaneous
  Country: CA (occurrence: None)
  Receive Date: 20140915
  Receipt Date: 20140915
  Transmission Date: 20150326
  Serious: Yes (Hospitalization)
  Sender: FDA-Public Use
  Company Number: 2504558

PATIENT
  Age: 16 Year
  Sex: Male
  Weight: 57 kg

DRUGS (7)
  1. WARFARIN [Concomitant]
     Active Substance: WARFARIN
  2. (VANCOMYCIN HYDROCHLORIDE) [Suspect]
     Active Substance: VANCOMYCIN HYDROCHLORIDE
     Indication: CYSTIC FIBROSIS
     Dosage: 250 MG MILLIGRAM(S), 2 DAY, RESPIRATORY
     Route: 055
     Dates: end: 201408
  3. CREON 10 [Concomitant]
     Indication: PRODUCT USED FOR UNKNOWN INDICATION
     Dosage: UNKNOWN, UNKNOWN, RESPIRATORY
  4. TOBI [Concomitant]
     Active Substance: TOBRAMYCIN
  5. (VANCOMYCIN HYDROCHLORIDE) [Suspect]
     Active Substance: VANCOMYCIN HYDROCHLORIDE
     Indication: CYSTIC FIBROSIS
     Dosage: 250 MG MILLIGRAM(S), 2 DAY, RESPIRATORY
     Route: 055
     Dates: start: 20140725
  6. PULMOZYME [Concomitant]
     Active Substance: DORNASE ALFA
  7. PREDNISONE. [Concomitant]
     Active Substance: PREDNISONE

REACTIONS (6)
  - Infective pulmonary exacerbation of cystic fibrosis [None]
  - Dyspnoea [None]
  - Product quality issue [None]
  - Cystic fibrosis [None]
  - Chest discomfort [None]
  - Disease progression [None]

NARRATIVE: CASE EVENT DATE: 20140801
